FAERS Safety Report 24656650 (Version 1)
Quarter: 2024Q4

REPORT INFORMATION
  Report Type: Spontaneous
  Country: US (occurrence: None)
  Receive Date: 20241120
  Receipt Date: 20241120
  Transmission Date: 20250114
  Serious: Yes (Other)
  Sender: Public
  Company Number: None

PATIENT
  Age: 69 Year
  Sex: Female
  Weight: 78.75 kg

DRUGS (10)
  1. XLEAR NASAL DECONGESTANT [Suspect]
     Active Substance: OXYMETAZOLINE HYDROCHLORIDE
     Indication: Nasal congestion
     Dosage: OTHER QUANTITY : 2 DROP(S);?FREQUENCY : TWICE A DAY;?OTHER ROUTE : NASAL PASSAGES;?
     Route: 050
     Dates: start: 20241015, end: 20241120
  2. XLEAR NASAL DECONGESTANT [Suspect]
     Active Substance: OXYMETAZOLINE HYDROCHLORIDE
     Indication: Cerebral congestion
  3. LORATADINE [Concomitant]
     Active Substance: LORATADINE
  4. XLEAR NASAL SPRAY WITH  XYLITOL [Concomitant]
  5. FISH OIL/OMEGA 3 [Concomitant]
  6. VITAMINS B12 [Concomitant]
  7. VITAMIN C [Concomitant]
     Active Substance: ASCORBIC ACID
  8. VITAMIN D3 [Concomitant]
     Active Substance: CHOLECALCIFEROL
  9. VITAMIN E [Concomitant]
     Active Substance: .ALPHA.-TOCOPHEROL
  10. CALCIUM [Concomitant]
     Active Substance: CALCIUM

REACTIONS (5)
  - Dizziness [None]
  - Palpitations [None]
  - Dermatitis contact [None]
  - Nasal congestion [None]
  - Blood pressure increased [None]

NARRATIVE: CASE EVENT DATE: 20241120
